FAERS Safety Report 8904585 (Version 1)
Quarter: 2012Q4

REPORT INFORMATION
  Report Type: 
  Country: CA (occurrence: CA)
  Receive Date: 20121113
  Receipt Date: 20121113
  Transmission Date: 20130627
  Serious: Yes (Hospitalization)
  Sender: FDA-Public Use
  Company Number: PHBS2001CA05181

PATIENT
  Age: 76 Year
  Sex: Female

DRUGS (2)
  1. EXELON [Suspect]
     Indication: DEMENTIA ALZHEIMER^S TYPE
     Dosage: 1.5 mg, daily
     Route: 048
     Dates: start: 20010205
  2. EXELON [Suspect]
     Dosage: 3 mg daily
     Route: 048

REACTIONS (2)
  - Bronchopneumonia [Not Recovered/Not Resolved]
  - Confusional state [Recovered/Resolved]
